FAERS Safety Report 6788362-1 (Version None)
Quarter: 2010Q2

REPORT INFORMATION
  Report Type: 
  Country: None (occurrence: None)
  Receive Date: 20100623
  Receipt Date: 20080318
  Transmission Date: 20101027
  Serious: Yes (Hospitalization)
  Sender: FDA-Public Use
  Company Number: US-PFIZER INC-2008015742

PATIENT
  Sex: Male

DRUGS (3)
  1. GEODON [Suspect]
     Indication: MAJOR DEPRESSION
     Dosage: Q HS
     Route: 048
     Dates: start: 20071212, end: 20080205
  2. LEXAPRO [Suspect]
     Dates: end: 20080205
  3. KLONOPIN [Concomitant]

REACTIONS (1)
  - SEROTONIN SYNDROME [None]
